FAERS Safety Report 4313594-1 (Version None)
Quarter: 2004Q1

REPORT INFORMATION
  Report Type: 
  Country: None (occurrence: None)
  Receive Date: 20040304
  Receipt Date: 20040213
  Transmission Date: 20041129
  Serious: Yes (Hospitalization)
  Sender: FDA-Public Use
  Company Number: US_0402100768

PATIENT
  Age: 50 Year
  Sex: Female

DRUGS (1)
  1. PERMAX [Suspect]
     Indication: PARKINSON'S DISEASE

REACTIONS (8)
  - AORTIC STENOSIS [None]
  - AORTIC VALVE INCOMPETENCE [None]
  - ATHEROSCLEROSIS [None]
  - MITRAL VALVE INCOMPETENCE [None]
  - PERICARDIAL EFFUSION [None]
  - PULMONARY HYPERTENSION [None]
  - PULMONARY OEDEMA [None]
  - TRICUSPID VALVE INCOMPETENCE [None]
